FAERS Safety Report 5636595-X (Version None)
Quarter: 2008Q1

REPORT INFORMATION
  Report Type: 
  Country: None (occurrence: None)
  Receive Date: 20080225
  Receipt Date: 20080219
  Transmission Date: 20080703
  Serious: Yes (Other)
  Sender: FDA-Public Use
  Company Number: PHHY2008JP01244

PATIENT
  Age: 19 Year
  Sex: Female

DRUGS (3)
  1. CARBAMAZEPINE [Suspect]
     Dosage: 100 MG/DAY
     Route: 048
     Dates: start: 20080108
  2. DEPAS [Concomitant]
     Route: 048
  3. EVE [Concomitant]
     Route: 048

REACTIONS (2)
  - HEMIPARESIS [None]
  - HYPOAESTHESIA [None]
